FAERS Safety Report 5792581-0 (Version None)
Quarter: 2008Q2

REPORT INFORMATION
  Report Type: 
  Country: None (occurrence: None)
  Receive Date: 20080626
  Receipt Date: 20080617
  Transmission Date: 20081010
  Serious: Yes (Hospitalization)
  Sender: FDA-Public Use
  Company Number: FR-AMGEN-US288403

PATIENT
  Age: 40 Year
  Sex: Male

DRUGS (1)
  1. ENBREL [Suspect]
     Indication: SAPHO SYNDROME
     Dosage: UNKNOWN
     Route: 058
     Dates: start: 20070101

REACTIONS (6)
  - FALL [None]
  - FATIGUE [None]
  - HYPOTONIA [None]
  - SAPHO SYNDROME [None]
  - SOMNOLENCE [None]
  - STATUS EPILEPTICUS [None]
